FAERS Safety Report 6183914-4 (Version None)
Quarter: 2009Q2

REPORT INFORMATION
  Report Type: 
  Country: None (occurrence: None)
  Receive Date: 20090504
  Receipt Date: 20090417
  Transmission Date: 20091009
  Serious: No
  Sender: FDA-Public Use
  Company Number: WSDF_00813

PATIENT
  Sex: Female

DRUGS (1)
  1. WINRHO SDF [Suspect]
     Indication: IDIOPATHIC THROMBOCYTOPENIC PURPURA
     Dosage: 3000 MCG ONCE IV
     Route: 042
     Dates: start: 20090406, end: 20090406

REACTIONS (7)
  - CHILLS [None]
  - DYSPNOEA [None]
  - HAEMOLYSIS [None]
  - HYPERSENSITIVITY [None]
  - HYPERTENSION [None]
  - PAIN [None]
  - URTICARIA [None]
